FAERS Safety Report 9630217 (Version 1)
Quarter: 2013Q4

REPORT INFORMATION
  Report Type: Spontaneous
  Country: FR (occurrence: FR)
  Receive Date: 20131017
  Receipt Date: 20131017
  Transmission Date: 20140711
  Serious: Yes (Hospitalization)
  Sender: FDA-Public Use
  Company Number: FR-ABBVIE-13P-056-1158747-00

PATIENT
  Age: 66 Year
  Sex: Female

DRUGS (3)
  1. DEPAKOTE [Suspect]
     Indication: AFFECTIVE DISORDER
     Route: 048
     Dates: start: 20130323, end: 201307
  2. DEPAKOTE [Suspect]
     Route: 048
     Dates: start: 20130702, end: 20130827
  3. ABILIFY [Suspect]
     Indication: PRODUCT USED FOR UNKNOWN INDICATION
     Route: 048
     Dates: end: 20130709

REACTIONS (4)
  - Talipes [Unknown]
  - Muscle rigidity [Unknown]
  - Gait disturbance [Unknown]
  - Dysphagia [Unknown]
